FAERS Safety Report 14636768 (Version 1)
Quarter: 2018Q1

REPORT INFORMATION
  Report Type: Spontaneous
  Country: FR (occurrence: FR)
  Receive Date: 20180314
  Receipt Date: 20180314
  Transmission Date: 20180509
  Serious: Yes (Hospitalization)
  Sender: FDA-Public Use
  Company Number: FR-TEVA-2018-FR-867319

PATIENT
  Age: 79 Year
  Sex: Male

DRUGS (16)
  1. DICLOFENAC [Concomitant]
     Active Substance: DICLOFENAC
  2. UROREC [Concomitant]
     Active Substance: SILODOSIN
  3. GENTAMICINE PANPHARMA 80 MG SOLUTION FOR INJECTION [Suspect]
     Active Substance: GENTAMICIN
     Indication: ENDOCARDITIS
     Dosage: EN 30 MINUTES
     Route: 041
  4. GLICLAZIDE [Concomitant]
     Active Substance: GLICLAZIDE
  5. PREVISCAN (FLUINDIONE) [Concomitant]
     Active Substance: FLUINDIONE
  6. RAMIPRIL. [Suspect]
     Active Substance: RAMIPRIL
     Indication: HYPERTENSION
     Route: 048
  7. ALLOPURINOL. [Concomitant]
     Active Substance: ALLOPURINOL
  8. RIFADINE 300 MG, CAPSULE HARD [Suspect]
     Active Substance: RIFAMPIN
     Indication: ENDOCARDITIS
     Route: 048
  9. CORDARONE [Concomitant]
     Active Substance: AMIODARONE HYDROCHLORIDE
  10. BISOPROLOL (FUMARATE ACIDE DE) [Concomitant]
     Active Substance: BISOPROLOL FUMARATE
  11. LASILIX [Concomitant]
     Active Substance: FUROSEMIDE
  12. VANCOMYCIN MYLAN 1 G POWDER FOR SOLUTION FOR INFUSION [Suspect]
     Active Substance: VANCOMYCIN
     Indication: ENDOCARDITIS
     Route: 041
  13. ESOMEPRAZOLE [Concomitant]
     Active Substance: ESOMEPRAZOLE
  14. RIFADINE 300 MG, HARD CAPSULE [Suspect]
     Active Substance: RIFAMPIN
     Indication: ENDOCARDITIS
     Dosage: 900 MILLIGRAM DAILY; 900 MG DAILY
     Route: 048
  15. CUBICIN [Suspect]
     Active Substance: DAPTOMYCIN
     Indication: ENDOCARDITIS
  16. KARDEGIC [Concomitant]
     Active Substance: ASPIRIN DL-LYSINE

REACTIONS (4)
  - Hyperbilirubinaemia [Not Recovered/Not Resolved]
  - Hypoacusis [Recovering/Resolving]
  - Acute kidney injury [Recovering/Resolving]
  - Jaundice [Not Recovered/Not Resolved]
